FAERS Safety Report 9322854 (Version 1)
Quarter: 2013Q2

REPORT INFORMATION
  Report Type: Report from Study
  Country: CA (occurrence: CA)
  Receive Date: 20130602
  Receipt Date: 20130602
  Transmission Date: 20140414
  Serious: Yes (Hospitalization, Other)
  Sender: FDA-Public Use
  Company Number: PHHY2012CA113417

PATIENT
  Age: 63 Year
  Sex: Male

DRUGS (6)
  1. GLEEVEC [Suspect]
     Indication: CHRONIC MYELOID LEUKAEMIA
     Dosage: 400 MG, QD
     Route: 048
     Dates: start: 200610
  2. VITAMIN D [Concomitant]
     Dosage: 1000 U, QD
  3. B12-VITAMIIN [Concomitant]
     Dosage: 1 PILL A DAY
     Route: 048
  4. OMEGA 3 [Concomitant]
  5. AMLODIPINE [Concomitant]
     Dosage: 5 MG, QD
  6. BISOPROLOL [Concomitant]
     Dosage: 2.5 MG, QD
     Dates: start: 200610

REACTIONS (7)
  - Post procedural complication [Unknown]
  - Renal cancer [Unknown]
  - Intestinal obstruction [Unknown]
  - Vitamin B12 decreased [Unknown]
  - Haemoglobin decreased [Unknown]
  - Fatigue [Unknown]
  - Renal impairment [Unknown]
